FAERS Safety Report 25042938 (Version 1)
Quarter: 2025Q1

REPORT INFORMATION
  Report Type: Spontaneous
  Country: CA (occurrence: CA)
  Receive Date: 20250305
  Receipt Date: 20250305
  Transmission Date: 20250409
  Serious: Yes (Death)
  Sender: GILEAD
  Company Number: CA-GILEAD-2025-0706192

PATIENT
  Age: 88 Year
  Sex: Male
  Weight: 79 kg

DRUGS (1)
  1. VEKLURY [Suspect]
     Active Substance: REMDESIVIR
     Indication: COVID-19
     Route: 065

REACTIONS (1)
  - Hypotension [Fatal]
